FAERS Safety Report 4457197-7 (Version None)
Quarter: 2004Q3

REPORT INFORMATION
  Report Type: 
  Country: None (occurrence: None)
  Receive Date: 20040923
  Receipt Date: 20040916
  Transmission Date: 20050211
  Serious: Yes (Other)
  Sender: FDA-Public Use
  Company Number: PHBS2004CA12312

PATIENT
  Sex: Male

DRUGS (2)
  1. DIOVAN HCT [Suspect]
     Indication: HYPERTENSION
     Dosage: VAL 80 / HCT 12.5 MG
     Route: 048
     Dates: end: 20040701
  2. DIOVAN HCT [Suspect]
     Dosage: VALS 160 / HCT 25 MG/DAY
     Route: 048
     Dates: start: 20040701

REACTIONS (4)
  - DYSPHAGIA [None]
  - PAIN IN EXTREMITY [None]
  - PHARYNGOLARYNGEAL PAIN [None]
  - THROAT TIGHTNESS [None]
